FAERS Safety Report 21535308 (Version 1)
Quarter: 2022Q4

REPORT INFORMATION
  Report Type: Spontaneous
  Country: US (occurrence: US)
  Receive Date: 20221101
  Receipt Date: 20221101
  Transmission Date: 20230113
  Serious: No
  Sender: FDA-Public Use
  Company Number: US-MIGRATION_PFIZER-2022BHV002036

PATIENT
  Age: 64 Year
  Sex: Male

DRUGS (1)
  1. NURTEC ODT [Suspect]
     Active Substance: RIMEGEPANT SULFATE
     Indication: Prophylaxis
     Dosage: TAKEN 4 TIMES- EVERY OTHER DAY OVER COURSE OF 2 WEEKS
     Route: 048

REACTIONS (3)
  - Drug ineffective [Unknown]
  - Nausea [Unknown]
  - Abdominal pain upper [Unknown]
